FAERS Safety Report 18235991 (Version 5)
Quarter: 2020Q4

REPORT INFORMATION
  Report Type: Report from Study
  Country: CO (occurrence: CO)
  Receive Date: 20200905
  Receipt Date: 20201224
  Transmission Date: 20210113
  Serious: Yes (Life-Threatening, Other)
  Sender: FDA-Public Use
  Company Number: PHHY2019CO206398

PATIENT
  Sex: Female
  Weight: 27 kg

DRUGS (4)
  1. SANDOSTATIN LAR DEPOT [Suspect]
     Active Substance: OCTREOTIDE ACETATE
     Dosage: 60 MG, QMO (2 OF 30 MG)
     Route: 030
  2. SANDOSTATIN LAR DEPOT [Suspect]
     Active Substance: OCTREOTIDE ACETATE
     Dosage: 40 MG, QMO
     Route: 030
  3. SANDOSTATIN LAR DEPOT [Suspect]
     Active Substance: OCTREOTIDE ACETATE
     Dosage: 30 MG
     Route: 030
  4. SANDOSTATIN LAR DEPOT [Suspect]
     Active Substance: OCTREOTIDE ACETATE
     Indication: NEUROENDOCRINE TUMOUR
     Dosage: 30 MG, QMO
     Route: 030
     Dates: start: 20140101

REACTIONS (11)
  - Gait disturbance [Unknown]
  - Feeling of despair [Unknown]
  - Vertigo [Unknown]
  - Application site pain [Unknown]
  - Weight decreased [Unknown]
  - Apparent death [Unknown]
  - Overdose [Unknown]
  - Amnesia [Unknown]
  - Asthenia [Unknown]
  - Arthralgia [Unknown]
  - Illness [Unknown]
